FAERS Safety Report 6753826-3 (Version None)
Quarter: 2010Q2

REPORT INFORMATION
  Report Type: 
  Country: None (occurrence: None)
  Receive Date: 20100603
  Receipt Date: 20100524
  Transmission Date: 20101027
  Serious: Yes (Hospitalization)
  Sender: FDA-Public Use
  Company Number: ES-WYE-H15437910

PATIENT
  Age: 84 Year
  Sex: Male

DRUGS (6)
  1. TRANGOREX [Suspect]
     Indication: ATRIAL FLUTTER
     Route: 048
     Dates: start: 20091001, end: 20100224
  2. DIGOXIN [Interacting]
     Indication: ATRIAL FLUTTER
     Dosage: DOSE UNKNOWN, FREQUENCY (WEEKLY)
     Route: 048
     Dates: start: 20100201, end: 20100224
  3. ADIRO [Concomitant]
     Dosage: DOSE AND FREQUENCY NOT SPECIFIED
     Route: 065
     Dates: start: 20071001
  4. LOSARTAN POTASSIUM [Interacting]
     Indication: HYPERTENSION
     Route: 048
     Dates: start: 20100201
  5. NITRODERM [Concomitant]
     Dosage: DOSE AND FREQUENCY NOT SPECIFIED
     Route: 065
     Dates: start: 20080101
  6. SINTROM [Concomitant]
     Dosage: DOSE AND FREQUENCY NOT SPECIFIED
     Route: 065
     Dates: start: 20091001

REACTIONS (4)
  - BRADYCARDIA [None]
  - CARDIAC FAILURE [None]
  - DRUG INTERACTION [None]
  - THERAPEUTIC AGENT TOXICITY [None]
